FAERS Safety Report 24121080 (Version 1)
Quarter: 2024Q3

REPORT INFORMATION
  Report Type: Spontaneous
  Country: US (occurrence: US)
  Receive Date: 20240722
  Receipt Date: 20240722
  Transmission Date: 20241016
  Serious: No
  Sender: STI PHARMA
  Company Number: US-STI Pharma LLC-2159345

PATIENT
  Age: 61 Year
  Sex: Female

DRUGS (5)
  1. ETHAMBUTOL HYDROCHLORIDE [Suspect]
     Active Substance: ETHAMBUTOL HYDROCHLORIDE
  2. AMIKACIN [Concomitant]
     Active Substance: AMIKACIN
  3. Clofazirnine [Concomitant]
  4. RIFAMPIN [Concomitant]
     Active Substance: RIFAMPIN
  5. AZITHROMYCIN [Concomitant]
     Active Substance: AZITHROMYCIN

REACTIONS (1)
  - Deafness [Unknown]
